FAERS Safety Report 8896270 (Version 2)
Quarter: 2012Q4

REPORT INFORMATION
  Report Type: Spontaneous
  Country: IL (occurrence: None)
  Receive Date: 20121031
  Receipt Date: 20121114
  Transmission Date: 20130627
  Serious: Yes (Hospitalization)
  Sender: FDA-Public Use
  Company Number: VAL_00944_2012

PATIENT
  Age: 56 Year
  Sex: Male
  Weight: 84 kg

DRUGS (10)
  1. LOPRESSOR [Suspect]
     Indication: PRODUCT USED FOR UNKNOWN INDICATION
     Dates: end: 20121009
  2. LOPRESSOR [Suspect]
     Indication: PRODUCT USED FOR UNKNOWN INDICATION
     Dosage: (DF Oral)
     Dates: end: 201210
  3. LCZ696 [Suspect]
     Indication: CARDIAC FAILURE CHRONIC
     Dosage: (DF Oral)
     Route: 048
     Dates: start: 20120916, end: 201210
  4. BISOPROLOL [Suspect]
     Indication: PRODUCT USED FOR UNKNOWN INDICATION
     Dosage: (DF)
     Dates: start: 20121009
  5. CARDILOC [Concomitant]
  6. COUMADIN /00014802/ [Concomitant]
  7. PLAVIX [Concomitant]
  8. ASPIRIN [Concomitant]
  9. ATORVASTATIN [Concomitant]
  10. TAMSULOSIN [Concomitant]

REACTIONS (2)
  - Ventricular tachycardia [None]
  - Shock [None]
